FAERS Safety Report 8005975-X (Version None)
Quarter: 2011Q4

REPORT INFORMATION
  Report Type: 
  Country: None (occurrence: None)
  Receive Date: 20111224
  Receipt Date: 20111220
  Transmission Date: 20120403
  Serious: Yes (Other)
  Sender: FDA-Public Use
  Company Number: US-VERTEX PHARMACEUTICALS INC.-AE-2011-005340

PATIENT
  Sex: Male
  Weight: 94.432 kg

DRUGS (3)
  1. INCIVEK [Suspect]
     Indication: HEPATITIS C
     Dates: start: 20111104, end: 20111121
  2. PEGASYS [Concomitant]
     Indication: HEPATITIS C
     Route: 058
     Dates: start: 20111104
  3. RIBAVIRIN [Concomitant]
     Indication: HEPATITIS C
     Route: 048
     Dates: start: 20111104, end: 20111121

REACTIONS (5)
  - HAEMORRHOIDS [None]
  - NAUSEA [None]
  - HEPATIC ENZYME INCREASED [None]
  - ASTHENIA [None]
  - RASH [None]
